FAERS Safety Report 9552967 (Version 1)
Quarter: 2013Q3

REPORT INFORMATION
  Report Type: Spontaneous
  Country: US (occurrence: None)
  Receive Date: 20130924
  Receipt Date: 20130924
  Transmission Date: 20140515
  Serious: Yes (Hospitalization)
  Sender: FDA-Public Use
  Company Number: None

PATIENT
  Age: 62 Year
  Sex: Female
  Weight: 81.3 kg

DRUGS (8)
  1. DECITABINE [Suspect]
     Dates: start: 20130816, end: 20130820
  2. DAUNORUBICIN [Suspect]
     Dates: start: 20130821, end: 20130823
  3. AMOXICILLIN-CLAVULANATE [Concomitant]
  4. POSACONAZOLE [Concomitant]
  5. VALACYCLOVIR [Concomitant]
  6. CHLORHEXIDINE [Concomitant]
  7. AMLODIPINE [Concomitant]
  8. ONDANSETRON [Concomitant]

REACTIONS (2)
  - Blood potassium increased [None]
  - Blood creatinine increased [None]
